FAERS Safety Report 22386539 (Version 1)
Quarter: 2023Q2

REPORT INFORMATION
  Report Type: Report from Study
  Country: BR (occurrence: BR)
  Receive Date: 20230531
  Receipt Date: 20230531
  Transmission Date: 20230722
  Serious: Yes (Hospitalization, Other)
  Sender: FDA-Public Use
  Company Number: BR-CELLTRION INC.-2023BR005320

PATIENT

DRUGS (2)
  1. INFLIXIMAB [Suspect]
     Active Substance: INFLIXIMAB
     Indication: Product used for unknown indication
     Dosage: UNK
     Route: 042
     Dates: start: 20221026
  2. PREDNISONE [Concomitant]
     Active Substance: PREDNISONE

REACTIONS (5)
  - Pyoderma gangrenosum [Unknown]
  - Pain [Unknown]
  - Symptom recurrence [Unknown]
  - Drug ineffective [Unknown]
  - Therapy interrupted [Unknown]
